FAERS Safety Report 8300642 (Version 2)
Quarter: 2014Q2

REPORT INFORMATION
  Report Type: Spontaneous
  Country: US (occurrence: US)
  Receive Date: 20111219
  Receipt Date: 20140528
  Transmission Date: 20141212
  Serious: No
  Sender: FDA-Public Use
  Company Number: US-ASTRAZENECA-2011SE19202

PATIENT
  Age: 58 Year
  Sex: Male

DRUGS (2)
  1. CRESTOR [Suspect]
     Route: 048
  2. ANTIBIOTICS [Concomitant]

REACTIONS (5)
  - Pneumonia [Unknown]
  - Chills [Unknown]
  - Nasopharyngitis [Unknown]
  - Drug dose omission [Not Recovered/Not Resolved]
  - Influenza [Unknown]
